FAERS Safety Report 7588448-8 (Version None)
Quarter: 2011Q3

REPORT INFORMATION
  Report Type: 
  Country: None (occurrence: None)
  Receive Date: 20110705
  Receipt Date: 20110627
  Transmission Date: 20111222
  Serious: Yes (Other)
  Sender: FDA-Public Use
  Company Number: IE-BAYER-2011-030494

PATIENT
  Sex: Female

DRUGS (1)
  1. YASMIN [Suspect]
     Dosage: UNK
     Route: 048

REACTIONS (2)
  - ERYTHEMA NODOSUM [None]
  - SARCOIDOSIS [None]
